FAERS Safety Report 6374459-7 (Version None)
Quarter: 2009Q3

REPORT INFORMATION
  Report Type: 
  Country: None (occurrence: None)
  Receive Date: 20090915
  Receipt Date: 20090915
  Transmission Date: 20100115
  Serious: Yes (Hospitalization)
  Sender: FDA-Public Use
  Company Number: None

PATIENT
  Sex: Female
  Weight: 148 kg

DRUGS (6)
  1. CYCLOPHOSPHAMIDE [Suspect]
     Dosage: 2710 MG
  2. CYTARABINE [Suspect]
     Dosage: 1624 MG
  3. MERCAPTOPURINE [Suspect]
     Dosage: 2300 MG
  4. METHOTREXATE [Suspect]
     Dosage: 30 MG
  5. PEG-L-ASPARAGINASE (K-H) [Suspect]
     Dosage: 6775 IU
  6. VINCRISTINE SULFATE [Suspect]
     Dosage: 2 MG

REACTIONS (4)
  - DYSPHAGIA [None]
  - HYPOAESTHESIA [None]
  - JUGULAR VEIN THROMBOSIS [None]
  - SUBCLAVIAN VEIN THROMBOSIS [None]
